FAERS Safety Report 21456157 (Version 3)
Quarter: 2023Q2

REPORT INFORMATION
  Report Type: Spontaneous
  Country: CA (occurrence: CA)
  Receive Date: 20221014
  Receipt Date: 20230517
  Transmission Date: 20230721
  Serious: Yes (Hospitalization)
  Sender: FDA-Public Use
  Company Number: CA-PFIZER INC-202201218356

PATIENT
  Age: 58 Year
  Sex: Female

DRUGS (11)
  1. SOMAVERT [Suspect]
     Active Substance: PEGVISOMANT
     Indication: Acromegaly
     Dosage: 15 MG 5X/WEEK, DISCONTINUED
     Route: 058
     Dates: start: 20140731
  2. SOMAVERT [Suspect]
     Active Substance: PEGVISOMANT
     Dosage: 10 MG
     Route: 058
  3. SOMAVERT [Suspect]
     Active Substance: PEGVISOMANT
     Dosage: 5X/WEEK
     Route: 058
     Dates: end: 2018
  4. SOMAVERT [Suspect]
     Active Substance: PEGVISOMANT
     Dosage: 4X/WEEK
     Route: 058
     Dates: start: 2019
  5. ANASTROZOLE [Concomitant]
     Active Substance: ANASTROZOLE
     Dosage: 1 MG
     Route: 065
  6. DEXILANT [Concomitant]
     Active Substance: DEXLANSOPRAZOLE
     Dosage: 60 MG, AS NEEDED, PRN
     Route: 065
  7. DOSTINEX [Concomitant]
     Active Substance: CABERGOLINE
     Dosage: 1 DF, 0.4MG X 4 PILLS A DAY, TWICE A WEEK
     Route: 065
  8. GLYBURIDE [Concomitant]
     Active Substance: GLYBURIDE
     Dosage: 2.5MG, 2X/DAY(1 DF)
     Route: 065
     Dates: start: 201911
  9. LYRICA [Concomitant]
     Active Substance: PREGABALIN
     Dosage: 75 MG, AS NEEDED, PRN
     Route: 065
  10. CHOLECALCIFEROL\FISH OIL [Concomitant]
     Active Substance: CHOLECALCIFEROL\FISH OIL
     Dosage: UNK
  11. SYNTHROID [Concomitant]
     Active Substance: LEVOTHYROXINE SODIUM
     Dosage: 1 DF,0.5MG AND 0.75MG ALTERNATING DAYS
     Route: 065

REACTIONS (10)
  - Angina pectoris [Not Recovered/Not Resolved]
  - COVID-19 [Not Recovered/Not Resolved]
  - Off label use [Unknown]
  - Headache [Not Recovered/Not Resolved]
  - Ear pain [Not Recovered/Not Resolved]
  - Oropharyngeal pain [Not Recovered/Not Resolved]
  - Pharyngitis [Not Recovered/Not Resolved]
  - Speech disorder [Unknown]
  - Illness [Not Recovered/Not Resolved]
  - Malaise [Unknown]

NARRATIVE: CASE EVENT DATE: 20140731
